FAERS Safety Report 13405811 (Version 2)
Quarter: 2017Q2

REPORT INFORMATION
  Report Type: Spontaneous
  Country: US (occurrence: US)
  Receive Date: 20170405
  Receipt Date: 20170407
  Transmission Date: 20170830
  Serious: Yes (Death, Hospitalization)
  Sender: FDA-Public Use
  Company Number: US-JNJFOC-20170401224

PATIENT
  Sex: Female

DRUGS (1)
  1. DARZALEX [Suspect]
     Active Substance: DARATUMUMAB
     Indication: PLASMA CELL MYELOMA
     Route: 042

REACTIONS (7)
  - Dyspnoea [Unknown]
  - Disease progression [Fatal]
  - Pseudomonas infection [Unknown]
  - Flushing [Unknown]
  - Transfusion reaction [Fatal]
  - Chronic obstructive pulmonary disease [Fatal]
  - Syncope [Unknown]
